FAERS Safety Report 4715112-2 (Version None)
Quarter: 2005Q3

REPORT INFORMATION
  Report Type: 
  Country: None (occurrence: None)
  Receive Date: 20050715
  Receipt Date: 20050407
  Transmission Date: 20060218
  Serious: Yes (Hospitalization)
  Sender: FDA-Public Use
  Company Number: US-MERCK-0504USA00980

PATIENT
  Age: 54 Year
  Sex: Female
  Weight: 64 kg

DRUGS (7)
  1. VIOXX [Suspect]
     Indication: ARTHRITIS
     Route: 048
     Dates: start: 20020101, end: 20040601
  2. VIOXX [Suspect]
     Route: 048
     Dates: start: 20020101, end: 20040601
  3. VIOXX [Suspect]
     Indication: OSTEOARTHRITIS
     Route: 048
     Dates: start: 20020101, end: 20040601
  4. VIOXX [Suspect]
     Route: 048
     Dates: start: 20020101, end: 20040601
  5. TOPAMAX [Concomitant]
     Indication: MIGRAINE
     Route: 065
  6. SENNA-C PLUS [Concomitant]
     Indication: CONSTIPATION PROPHYLAXIS
     Route: 065
  7. NAPROXEN [Concomitant]
     Indication: MIGRAINE
     Route: 065
     Dates: start: 19920101

REACTIONS (7)
  - ADVERSE EVENT [None]
  - BLOOD CHOLESTEROL INCREASED [None]
  - BRONCHITIS [None]
  - DRUG INEFFECTIVE [None]
  - DYSPNOEA [None]
  - HYPERSENSITIVITY [None]
  - MYOCARDIAL INFARCTION [None]
